FAERS Safety Report 4828654-6 (Version None)
Quarter: 2005Q4

REPORT INFORMATION
  Report Type: 
  Country: None (occurrence: None)
  Receive Date: 20051014
  Receipt Date: 20050624
  Transmission Date: 20060501
  Serious: No
  Sender: FDA-Public Use
  Company Number: 2005SP001597

PATIENT
  Age: 47 Year
  Sex: Female
  Weight: 86.637 kg

DRUGS (2)
  1. LUNESTA [Suspect]
     Dosage: 3 MG;1X;ORAL, 6 MG;ORAL
     Route: 048
     Dates: start: 20050617, end: 20050617
  2. LUNESTA [Suspect]
     Dosage: 3 MG;1X;ORAL, 6 MG;ORAL
     Route: 048
     Dates: start: 20050618

REACTIONS (2)
  - DRUG INEFFECTIVE [None]
  - INSOMNIA [None]
